FAERS Safety Report 10911800 (Version 5)
Quarter: 2016Q1

REPORT INFORMATION
  Report Type: Spontaneous
  Country: DK (occurrence: DK)
  Receive Date: 20150313
  Receipt Date: 20160203
  Transmission Date: 20160525
  Serious: Yes (Hospitalization, Other)
  Sender: FDA-Public Use
  Company Number: DK-BRISTOL-MYERS SQUIBB COMPANY-BMS-2015-014690

PATIENT
  Age: 64 Year
  Sex: Male

DRUGS (20)
  1. GLIMEPIRIDE. [Concomitant]
     Active Substance: GLIMEPIRIDE
     Indication: TYPE 2 DIABETES MELLITUS
     Route: 065
     Dates: start: 20140211, end: 20150218
  2. ELIQUIS [Suspect]
     Active Substance: APIXABAN
     Indication: THROMBOSIS PROPHYLAXIS
     Dosage: 5 MG, BID
     Route: 048
     Dates: start: 20150123, end: 20150218
  3. ALPROSTADIL. [Concomitant]
     Active Substance: ALPROSTADIL
     Indication: ERECTILE DYSFUNCTION
     Route: 065
     Dates: start: 20140422
  4. DIGOXIN. [Concomitant]
     Active Substance: DIGOXIN
     Indication: HEART RATE IRREGULAR
     Route: 065
     Dates: start: 20150123, end: 20150218
  5. LAMICTAL [Concomitant]
     Active Substance: LAMOTRIGINE
     Indication: PROPHYLAXIS
     Route: 065
     Dates: start: 20140422
  6. OXYCONTIN [Concomitant]
     Active Substance: OXYCODONE HYDROCHLORIDE
     Indication: PAIN
     Route: 065
     Dates: start: 20150206
  7. METOPROLOL SUCCINATE. [Concomitant]
     Active Substance: METOPROLOL SUCCINATE
     Indication: HEART RATE IRREGULAR
     Route: 065
     Dates: start: 20150206
  8. EMPERAL [Concomitant]
     Active Substance: METOCLOPRAMIDE HYDROCHLORIDE
     Indication: NAUSEA
     Route: 065
     Dates: start: 20140422
  9. PANODIL [Concomitant]
     Active Substance: ACETAMINOPHEN
     Indication: PAIN
     Route: 065
     Dates: start: 20150206
  10. ZOPICLONE [Concomitant]
     Active Substance: ZOPICLONE
     Indication: INSOMNIA
     Route: 065
     Dates: start: 20140422
  11. HUMIRA [Suspect]
     Active Substance: ADALIMUMAB
     Indication: HIDRADENITIS
     Dosage: STYRKE: 40 MG
     Route: 058
     Dates: start: 20140410, end: 20150225
  12. DERMOVAT                           /00008503/ [Concomitant]
     Indication: ECZEMA
     Route: 065
     Dates: start: 20141110
  13. KOFFEIN-FENAZON [Concomitant]
     Indication: PAIN
     Route: 065
     Dates: start: 20150123
  14. LOSARTAN BLUEFISH [Concomitant]
     Active Substance: LOSARTAN
     Indication: RENAL DISORDER
     Route: 065
     Dates: start: 20141007, end: 20150218
  15. OXYNORM [Concomitant]
     Active Substance: OXYCODONE HYDROCHLORIDE
     Indication: PAIN
     Route: 065
     Dates: start: 20150206
  16. DIAZEPAM. [Concomitant]
     Active Substance: DIAZEPAM
     Indication: RESTLESSNESS
     Route: 065
     Dates: start: 20140422
  17. VIZARSIN [Concomitant]
     Indication: ERECTILE DYSFUNCTION
     Route: 065
     Dates: start: 20140422
  18. BETNOVAT MED CHINOFORM [Concomitant]
     Indication: ECZEMA INFECTED
     Route: 065
     Dates: start: 20140410
  19. DALACIN                            /00166002/ [Concomitant]
     Active Substance: CLINDAMYCIN HYDROCHLORIDE
     Indication: INFECTION
     Route: 065
     Dates: start: 20140410
  20. LANSOPRAZOL [Concomitant]
     Active Substance: LANSOPRAZOLE
     Indication: GASTROOESOPHAGEAL REFLUX DISEASE
     Route: 065
     Dates: start: 20140422

REACTIONS (4)
  - Metabolic acidosis [Recovered/Resolved]
  - Acute kidney injury [Recovered/Resolved]
  - Off label use [Unknown]
  - Dialysis [Recovered/Resolved]

NARRATIVE: CASE EVENT DATE: 201502
